FAERS Safety Report 7494960-2 (Version None)
Quarter: 2011Q2

REPORT INFORMATION
  Report Type: 
  Country: None (occurrence: None)
  Receive Date: 20110520
  Receipt Date: 20110422
  Transmission Date: 20111010
  Serious: No
  Sender: FDA-Public Use
  Company Number: US-BAYER-2011-036269

PATIENT
  Age: 65 Year
  Sex: Male
  Weight: 90.703 kg

DRUGS (3)
  1. SIMVASTATIN [Concomitant]
  2. METOPROLOL SUCCINATE [Concomitant]
  3. ALEVE (CAPLET) [Suspect]
     Indication: BACK PAIN
     Dosage: 440 MG, BID, BOTTLE COUNT 100CT
     Route: 048
     Dates: start: 20110422

REACTIONS (1)
  - BACK PAIN [None]
